FAERS Safety Report 8415261-1 (Version None)
Quarter: 2012Q2

REPORT INFORMATION
  Report Type: 
  Country: None (occurrence: None)
  Receive Date: 20120606
  Receipt Date: 20120601
  Transmission Date: 20120825
  Serious: No
  Sender: FDA-Public Use
  Company Number: US-BAYER-2012-055608

PATIENT
  Age: 69 Year
  Sex: Male

DRUGS (7)
  1. STAXYN [Suspect]
     Indication: ERECTILE DYSFUNCTION
     Dosage: 10 MG, UNK
     Route: 048
     Dates: start: 20120527, end: 20120527
  2. METFORMIN HCL [Concomitant]
  3. LYRICA [Concomitant]
  4. BENICAR [Concomitant]
  5. JALYN [Concomitant]
  6. PRAVASTATIN [Concomitant]
  7. PREVACID [Concomitant]

REACTIONS (1)
  - NASAL CONGESTION [None]
